FAERS Safety Report 19914089 (Version 2)
Quarter: 2021Q4

REPORT INFORMATION
  Report Type: Spontaneous
  Country: PT (occurrence: PT)
  Receive Date: 20211005
  Receipt Date: 20211014
  Transmission Date: 20220303
  Serious: Yes (Disabling, Other)
  Sender: FDA-Public Use
  Company Number: PT-002147023-NVSC2021PT218188

PATIENT
  Age: 44 Year
  Sex: Female

DRUGS (10)
  1. ERENUMAB [Suspect]
     Active Substance: ERENUMAB
     Indication: Migraine with aura
     Dosage: UNK
     Route: 065
     Dates: start: 201902
  2. ERENUMAB [Suspect]
     Active Substance: ERENUMAB
     Indication: Vertigo
     Dosage: UNK
     Route: 065
     Dates: start: 201906
  3. ERENUMAB [Suspect]
     Active Substance: ERENUMAB
     Dosage: UNK
     Route: 065
     Dates: start: 201910
  4. ERENUMAB [Suspect]
     Active Substance: ERENUMAB
     Dosage: UNK
     Route: 065
     Dates: start: 201911
  5. TOPIRAMATE [Concomitant]
     Active Substance: TOPIRAMATE
     Indication: Weight decreased
     Dosage: UNK
     Route: 065
  6. TOPIRAMATE [Concomitant]
     Active Substance: TOPIRAMATE
     Indication: Cognitive disorder
  7. FLUNARIZINE [Concomitant]
     Active Substance: FLUNARIZINE
     Indication: Arthralgia
     Dosage: UNK
     Route: 065
  8. FLUNARIZINE [Concomitant]
     Active Substance: FLUNARIZINE
     Indication: Fatigue
  9. AMITRIPTYLINE [Concomitant]
     Active Substance: AMITRIPTYLINE
     Indication: Alopecia
     Dosage: UNK
     Route: 065
  10. PROPRANOLOL HYDROCHLORIDE [Concomitant]
     Active Substance: PROPRANOLOL HYDROCHLORIDE
     Indication: Product used for unknown indication
     Dosage: UNK
     Route: 065

REACTIONS (6)
  - Vertigo [Unknown]
  - Sepsis [Unknown]
  - Headache [Unknown]
  - Posture abnormal [Unknown]
  - Tinnitus [Unknown]
  - Hypoacusis [Unknown]
